FAERS Safety Report 22540023 (Version 1)
Quarter: 2023Q2

REPORT INFORMATION
  Report Type: Spontaneous
  Country: US (occurrence: US)
  Receive Date: 20230609
  Receipt Date: 20230609
  Transmission Date: 20230721
  Serious: No
  Sender: FDA-Public Use
  Company Number: US-ELI_LILLY_AND_COMPANY-US202306003978

PATIENT
  Sex: Female

DRUGS (1)
  1. TALTZ [Suspect]
     Active Substance: IXEKIZUMAB
     Indication: Psoriatic arthropathy
     Dosage: 80 MG, OTHER
     Route: 058
     Dates: start: 202012

REACTIONS (4)
  - Psoriatic arthropathy [Unknown]
  - Spinal disorder [Recovered/Resolved]
  - Abdominal pain upper [Recovered/Resolved]
  - Depression [Unknown]
